FAERS Safety Report 4877423-X (Version None)
Quarter: 2006Q1

REPORT INFORMATION
  Report Type: 
  Country: None (occurrence: None)
  Receive Date: 20060109
  Receipt Date: 20051227
  Transmission Date: 20060701
  Serious: Yes (Other)
  Sender: FDA-Public Use
  Company Number: 2005173599

PATIENT
  Age: 63 Year
  Sex: Male
  Weight: 104.3273 kg

DRUGS (15)
  1. VIAGRA [Suspect]
     Indication: ERECTILE DYSFUNCTION
     Dosage: (25 MG), ORAL
     Route: 048
  2. ZOCOR [Concomitant]
  3. PLAVIX [Concomitant]
  4. ALLOPURINOL [Concomitant]
  5. LISINOPRIL [Concomitant]
  6. NORVASC [Concomitant]
  7. COREG [Concomitant]
  8. ASPIRIN [Concomitant]
  9. PRILOSEC [Concomitant]
  10. TERAZOSIN (TERAZOSIN) [Concomitant]
  11. MONTELUKAST (MONTELUKAST) [Concomitant]
  12. ALBUTEROL [Concomitant]
  13. GLIPIZIDE [Concomitant]
  14. NASACORT [Concomitant]
  15. VIOXX [Concomitant]

REACTIONS (5)
  - BENIGN PROSTATIC HYPERPLASIA [None]
  - CONDITION AGGRAVATED [None]
  - DRUG INEFFECTIVE [None]
  - ERECTILE DYSFUNCTION [None]
  - POST PROCEDURAL COMPLICATION [None]
